FAERS Safety Report 4426771-6 (Version None)
Quarter: 2004Q3

REPORT INFORMATION
  Report Type: 
  Country: None (occurrence: None)
  Receive Date: 20040811
  Receipt Date: 20040727
  Transmission Date: 20050211
  Serious: Yes (Hospitalization)
  Sender: FDA-Public Use
  Company Number: 238015

PATIENT
  Age: 37 Year
  Sex: Male
  Weight: 83.9 kg

DRUGS (3)
  1. NOVOLIN 70/30 [Suspect]
     Indication: DIABETES MELLITUS INSULIN-DEPENDENT
     Dosage: SEE IMAGE
     Dates: start: 20010101, end: 20040426
  2. NOVOLIN 70/30 [Suspect]
     Indication: DIABETES MELLITUS INSULIN-DEPENDENT
     Dosage: SEE IMAGE
     Dates: start: 20040426, end: 20040601
  3. ALBUTEROL [Concomitant]

REACTIONS (11)
  - AGITATION [None]
  - BLOOD GLUCOSE INCREASED [None]
  - DEHYDRATION [None]
  - DIABETIC KETOACIDOSIS [None]
  - GLYCOSYLATED HAEMOGLOBIN INCREASED [None]
  - INFECTION [None]
  - MEDICATION ERROR [None]
  - MULTI-ORGAN FAILURE [None]
  - NAUSEA [None]
  - PHARMACEUTICAL PRODUCT COMPLAINT [None]
  - VOMITING [None]
